FAERS Safety Report 7311389-8 (Version None)
Quarter: 2011Q1

REPORT INFORMATION
  Report Type: 
  Country: None (occurrence: None)
  Receive Date: 20110224
  Receipt Date: 20110222
  Transmission Date: 20110831
  Serious: Yes (Other)
  Sender: FDA-Public Use
  Company Number: US-PFIZER INC-2010156727

PATIENT
  Sex: Female
  Weight: 54 kg

DRUGS (7)
  1. XANAX [Suspect]
     Indication: CHEST PAIN
  2. ALBUTEROL [Concomitant]
     Dosage: UNK
  3. XANAX [Suspect]
     Indication: SLEEP DISORDER
  4. ITRACONAZOLE [Suspect]
     Dosage: UNK
  5. XANAX [Suspect]
     Indication: ASTHMA
     Dosage: UNK
     Route: 048
  6. XANAX [Suspect]
     Indication: ABDOMINAL PAIN
     Dosage: 2 MG, 4X/DAY
  7. AMBIEN [Concomitant]
     Dosage: UNK

REACTIONS (15)
  - CARDIAC DISORDER [None]
  - IRON BINDING CAPACITY TOTAL INCREASED [None]
  - RESPIRATORY TRACT INFECTION [None]
  - GASTRIC DISORDER [None]
  - MALAISE [None]
  - MIDDLE INSOMNIA [None]
  - HAEMORRHAGE [None]
  - OSTEOPOROSIS [None]
  - SPINAL FRACTURE [None]
  - DYSPNOEA [None]
  - MEDICATION ERROR [None]
  - VOLVULUS [None]
  - HAEMOGLOBIN DECREASED [None]
  - INFECTION [None]
  - VASCULAR INJURY [None]
